FAERS Safety Report 19164546 (Version 4)
Quarter: 2021Q3

REPORT INFORMATION
  Report Type: Report from Study
  Country: US (occurrence: US)
  Receive Date: 20210421
  Receipt Date: 20210716
  Transmission Date: 20211014
  Serious: Yes (Other)
  Sender: FDA-Public Use
  Company Number: US-INSMED, INC.-2021-08110-US

PATIENT
  Age: 85 Year
  Sex: Female

DRUGS (4)
  1. ARIKAYCE [Suspect]
     Active Substance: AMIKACIN
     Dosage: 590 MILLIGRAM, QD
     Route: 055
     Dates: start: 20210706
  2. ARIKAYCE [Suspect]
     Active Substance: AMIKACIN
     Dosage: 590 MILLIGRAM, QD
     Route: 055
     Dates: start: 202103, end: 20210608
  3. ARIKAYCE [Suspect]
     Active Substance: AMIKACIN
     Dosage: 590 MILLIGRAM, QOD
     Route: 055
     Dates: start: 20210315, end: 202103
  4. ARIKAYCE [Suspect]
     Active Substance: AMIKACIN
     Indication: MYCOBACTERIAL INFECTION
     Dosage: 590 MILLIGRAM, QD
     Route: 055
     Dates: start: 202103

REACTIONS (23)
  - Dyspnoea [Not Recovered/Not Resolved]
  - Cough [Not Recovered/Not Resolved]
  - Sputum increased [Not Recovered/Not Resolved]
  - Weight decreased [Not Recovered/Not Resolved]
  - Asthenia [Not Recovered/Not Resolved]
  - Fatigue [Not Recovered/Not Resolved]
  - Off label use [Unknown]
  - Nausea [Unknown]
  - Blindness unilateral [Not Recovered/Not Resolved]
  - Incontinence [Recovering/Resolving]
  - Decreased appetite [Not Recovered/Not Resolved]
  - Feeling abnormal [Unknown]
  - Product dose omission issue [Unknown]
  - Oxygen saturation decreased [Not Recovered/Not Resolved]
  - Diarrhoea [Not Recovered/Not Resolved]
  - Therapy interrupted [Unknown]
  - Myalgia [Not Recovered/Not Resolved]
  - Bronchial haemorrhage [Not Recovered/Not Resolved]
  - Retching [Not Recovered/Not Resolved]
  - Drug ineffective [Unknown]
  - Secretion discharge [Not Recovered/Not Resolved]
  - Cystitis [Not Recovered/Not Resolved]
  - Device leakage [Unknown]

NARRATIVE: CASE EVENT DATE: 2021
